FAERS Safety Report 19110097 (Version 2)
Quarter: 2022Q3

REPORT INFORMATION
  Report Type: Report from Study
  Country: US (occurrence: US)
  Receive Date: 20210409
  Receipt Date: 20220922
  Transmission Date: 20221027
  Serious: No
  Sender: FDA-Public Use
  Company Number: US-GILEAD-2021-0524106

PATIENT
  Age: 87 Year
  Sex: Female
  Weight: 73.469 kg

DRUGS (2)
  1. AMBRISENTAN [Suspect]
     Active Substance: AMBRISENTAN
     Indication: Pulmonary arterial hypertension
     Dosage: 5 MG, QD
     Route: 065
  2. TYVASO [Suspect]
     Active Substance: TREPROSTINIL
     Indication: Pulmonary arterial hypertension
     Dosage: 18-54 UG, QID
     Route: 055
     Dates: start: 20210208

REACTIONS (2)
  - Epistaxis [Unknown]
  - Pulmonary arterial pressure increased [Unknown]

NARRATIVE: CASE EVENT DATE: 20210101
